FAERS Safety Report 4689392-6 (Version None)
Quarter: 2005Q2

REPORT INFORMATION
  Report Type: 
  Country: None (occurrence: None)
  Receive Date: 20050608
  Receipt Date: 20050214
  Transmission Date: 20051028
  Serious: No
  Sender: FDA-Public Use
  Company Number: 2005-BP-02326BP

PATIENT
  Age: 72 Year
  Sex: Male

DRUGS (23)
  1. SPIRIVA [Suspect]
     Indication: ASTHMA
     Dosage: 18 MCG (18 MCG, QD), IH
     Route: 055
     Dates: start: 20050201, end: 20050212
  2. SPIRIVA [Suspect]
     Indication: CHRONIC OBSTRUCTIVE PULMONARY DISEASE
     Dosage: 18 MCG (18 MCG, QD), IH
     Route: 055
     Dates: start: 20050201, end: 20050212
  3. SPIRIVA [Suspect]
     Indication: ASTHMA
     Dosage: 18 MCG (18 MCG, QD), IH
     Route: 055
     Dates: start: 20050215, end: 20050219
  4. SPIRIVA [Suspect]
     Indication: CHRONIC OBSTRUCTIVE PULMONARY DISEASE
     Dosage: 18 MCG (18 MCG, QD), IH
     Route: 055
     Dates: start: 20050215, end: 20050219
  5. SPIRIVA [Suspect]
  6. ADVAIR DISKUS 100/50 [Concomitant]
  7. ALBUTEROL [Concomitant]
  8. SINGULAIR [Concomitant]
  9. ISOSORBIDE [Concomitant]
  10. CARTIA XT (UNDUR) [Concomitant]
  11. PLAVIX [Concomitant]
  12. FUROSEMIDE [Concomitant]
  13. FLOMAX [Concomitant]
  14. PRILOSEC [Concomitant]
  15. LIPITOR [Concomitant]
  16. GLIPIZIDE [Concomitant]
  17. HUMALOG [Concomitant]
  18. LANTUS (INSULINN GLARGINE) [Concomitant]
  19. FOSAMAX [Concomitant]
  20. CALTRATE WITH VITAMIN D [Concomitant]
  21. COLCHICINE [Concomitant]
  22. ASPIRIN [Concomitant]
  23. MULTI-VITAMIN [Concomitant]

REACTIONS (5)
  - ARTHRALGIA [None]
  - BACK PAIN [None]
  - OEDEMA PERIPHERAL [None]
  - PAIN IN EXTREMITY [None]
  - SHOULDER PAIN [None]
